FAERS Safety Report 20378963 (Version 1)
Quarter: 2022Q1

REPORT INFORMATION
  Report Type: Spontaneous
  Country: US (occurrence: US)
  Receive Date: 20220126
  Receipt Date: 20220126
  Transmission Date: 20220423
  Serious: No
  Sender: FDA-Public Use
  Company Number: US-PFIZER INC-202200121338

PATIENT
  Sex: Male

DRUGS (1)
  1. PAXLOVID [Suspect]
     Active Substance: NIRMATRELVIR\RITONAVIR
     Dosage: 2 PILLS IN THE MORNING FROM THE MORNING SIDE AND 1 PILL FROM THE EVENING SIDE
     Route: 048

REACTIONS (1)
  - Incorrect dose administered [Unknown]
